FAERS Safety Report 5028201-2 (Version None)
Quarter: 2006Q2

REPORT INFORMATION
  Report Type: 
  Country: None (occurrence: None)
  Receive Date: 20060613
  Receipt Date: 20060601
  Transmission Date: 20061013
  Serious: Yes (Hospitalization)
  Sender: FDA-Public Use
  Company Number: 200613925BWH

PATIENT
  Age: 85 Year
  Sex: Male

DRUGS (1)
  1. NEXAVAR [Suspect]
     Indication: SARCOMA
     Dosage: 400 MG, BID, ORAL
     Route: 048
     Dates: start: 20060510, end: 20060522

REACTIONS (8)
  - ANOREXIA [None]
  - ASTHENIA [None]
  - BLISTER [None]
  - DEHYDRATION [None]
  - FATIGUE [None]
  - RASH GENERALISED [None]
  - RENAL FAILURE [None]
  - STOMATITIS [None]
